FAERS Safety Report 15992040 (Version 1)
Quarter: 2019Q1

REPORT INFORMATION
  Report Type: Report from Study
  Country: US (occurrence: US)
  Receive Date: 20190221
  Receipt Date: 20190221
  Transmission Date: 20190418
  Serious: Yes (Other)
  Sender: FDA-Public Use
  Company Number: US-JNJFOC-20190215685

PATIENT

DRUGS (1)
  1. SILTUXIMAB [Suspect]
     Active Substance: SILTUXIMAB
     Indication: PLASMA CELL MYELOMA
     Route: 042

REACTIONS (3)
  - Off label use [Unknown]
  - Pneumonia [Unknown]
  - Product use in unapproved indication [Unknown]
